FAERS Safety Report 5077932-7 (Version None)
Quarter: 2006Q3

REPORT INFORMATION
  Report Type: 
  Country: None (occurrence: None)
  Receive Date: 20060808
  Receipt Date: 20060725
  Transmission Date: 20061208
  Serious: Yes (Hospitalization)
  Sender: FDA-Public Use
  Company Number: GXKR2006CA03923

PATIENT
  Age: 52 Year
  Sex: Female

DRUGS (2)
  1. WARFARIN SODIUM [Suspect]
     Indication: DEEP VEIN THROMBOSIS
     Dosage: 5 MG
  2. HEPARIN [Concomitant]

REACTIONS (23)
  - BLOOD CREATININE INCREASED [None]
  - BLOOD FIBRINOGEN DECREASED [None]
  - BLOOD LACTATE DEHYDROGENASE INCREASED [None]
  - CATHETER RELATED COMPLICATION [None]
  - DEEP VEIN THROMBOSIS [None]
  - GANGRENE [None]
  - HAEMODIALYSIS [None]
  - HAEMOGLOBIN DECREASED [None]
  - HAEMOLYSIS [None]
  - INTERNATIONAL NORMALISED RATIO INCREASED [None]
  - JUGULAR VEIN THROMBOSIS [None]
  - MENTAL STATUS CHANGES [None]
  - METASTATIC NEOPLASM [None]
  - NAUSEA [None]
  - OLIGURIA [None]
  - PLATELET COUNT DECREASED [None]
  - PROTEIN C DECREASED [None]
  - PROTEIN C INCREASED [None]
  - RETICULOCYTE COUNT INCREASED [None]
  - SKIN NECROSIS [None]
  - THROMBOTIC MICROANGIOPATHY [None]
  - THROMBOTIC THROMBOCYTOPENIC PURPURA [None]
  - VOMITING [None]
